FAERS Safety Report 16793111 (Version 9)
Quarter: 2020Q3

REPORT INFORMATION
  Report Type: Report from Study
  Country: None (occurrence: JP)
  Receive Date: 20190911
  Receipt Date: 20200723
  Transmission Date: 20201102
  Serious: Yes (Hospitalization)
  Sender: FDA-Public Use
  Company Number: JP-ABBVIE-19K-087-2918666-00

PATIENT
  Age: 77 Year
  Sex: Female

DRUGS (1)
  1. DUODOPA [Suspect]
     Active Substance: CARBIDOPA\LEVODOPA
     Indication: PARKINSON^S DISEASE
     Route: 050
     Dates: start: 201906

REACTIONS (17)
  - Ear pain [Unknown]
  - Cough [Unknown]
  - Back pain [Recovered/Resolved]
  - Back pain [Unknown]
  - Pollakiuria [Not Recovered/Not Resolved]
  - Stoma site pain [Recovering/Resolving]
  - Device issue [Unknown]
  - Urticaria [Recovered/Resolved]
  - Urinary incontinence [Unknown]
  - Stoma site erythema [Unknown]
  - Device placement issue [Unknown]
  - Injury associated with device [Recovered/Resolved]
  - Malaise [Unknown]
  - On and off phenomenon [Unknown]
  - Stoma site hypergranulation [Recovering/Resolving]
  - Medical device site pain [Unknown]
  - Stoma site discharge [Recovering/Resolving]

NARRATIVE: CASE EVENT DATE: 2019
